FAERS Safety Report 10919286 (Version 2)
Quarter: 2015Q1

REPORT INFORMATION
  Report Type: Spontaneous
  Country: CA (occurrence: CA)
  Receive Date: 20150316
  Receipt Date: 20150317
  Transmission Date: 20150721
  Serious: Yes (Life-Threatening, Hospitalization, Other)
  Sender: FDA-Public Use
  Company Number: CA-GILEAD-2015-0142028

PATIENT
  Age: 68 Year
  Sex: Male
  Weight: 87.9 kg

DRUGS (6)
  1. TAMSULOSIN                         /01280302/ [Concomitant]
     Dosage: UNK
  2. HARVONI [Suspect]
     Active Substance: LEDIPASVIR\SOFOSBUVIR
     Indication: PRODUCT USED FOR UNKNOWN INDICATION
     Dosage: 1 DF, UNK
     Route: 048
     Dates: start: 20141219, end: 20150312
  3. DULOXETINE [Concomitant]
     Active Substance: DULOXETINE
     Dosage: UNK
  4. AMITRIPTYLINE [Concomitant]
     Active Substance: AMITRIPTYLINE
     Dosage: UNK
  5. ASA EG [Concomitant]
     Dosage: UNK
  6. CORTISONE [Concomitant]
     Active Substance: CORTISONE\HYDROCORTISONE

REACTIONS (10)
  - Rhabdomyolysis [Recovered/Resolved]
  - Hyperglycaemia [Unknown]
  - Pancreatitis acute [Recovered/Resolved]
  - Acute kidney injury [Recovered/Resolved]
  - Acute stress disorder [Unknown]
  - Hepatic cirrhosis [Not Recovered/Not Resolved]
  - Hypercalcaemia [Unknown]
  - Type 2 diabetes mellitus [Unknown]
  - Diabetic ketoacidosis [Unknown]
  - Confusional state [Recovered/Resolved]

NARRATIVE: CASE EVENT DATE: 20150221
